FAERS Safety Report 5082584-6 (Version None)
Quarter: 2006Q3

REPORT INFORMATION
  Report Type: 
  Country: None (occurrence: None)
  Receive Date: 20060814
  Receipt Date: 20060731
  Transmission Date: 20061208
  Serious: Yes (Death)
  Sender: FDA-Public Use
  Company Number: 2006S1007153

PATIENT
  Age: 42 Year
  Sex: Male

DRUGS (1)
  1. FENTANYL TRANSDERMAL SYSTEM [Suspect]
     Indication: INSOMNIA
     Dosage: 100 UG/HR;Q3D;TDER
     Route: 062
     Dates: start: 20050803, end: 20050804

REACTIONS (1)
  - DRUG PRESCRIBING ERROR [None]
